FAERS Safety Report 10954434 (Version 3)
Quarter: 2016Q1

REPORT INFORMATION
  Report Type: Spontaneous
  Country: US (occurrence: US)
  Receive Date: 20150325
  Receipt Date: 20160316
  Transmission Date: 20160525
  Serious: Yes (Hospitalization, Other)
  Sender: FDA-Public Use
  Company Number: US-GLAXOSMITHKLINE-US2015GSK038970

PATIENT
  Sex: Male

DRUGS (6)
  1. KEPPRA [Concomitant]
     Active Substance: LEVETIRACETAM
  2. LISINOPRIL HYDRATE [Concomitant]
     Active Substance: LISINOPRIL
  3. VENTOLIN HFA [Suspect]
     Active Substance: ALBUTEROL SULFATE
     Indication: DYSPNOEA
     Dosage: UNK, U
     Route: 065
     Dates: start: 2014
  4. ASPIRIN. [Concomitant]
     Active Substance: ASPIRIN
  5. VENTOLIN HFA [Suspect]
     Active Substance: ALBUTEROL SULFATE
     Dosage: 2 PUFF(S), PRN
     Route: 055
  6. SERTRALINE [Concomitant]
     Active Substance: SERTRALINE HYDROCHLORIDE

REACTIONS (9)
  - Generalised tonic-clonic seizure [Unknown]
  - Intentional product use issue [Unknown]
  - Seizure [Recovered/Resolved]
  - Drug dose omission [Unknown]
  - Dyspnoea [Recovering/Resolving]
  - Head injury [Unknown]
  - Nasal congestion [Recovering/Resolving]
  - Anxiety [Not Recovered/Not Resolved]
  - Nasopharyngitis [Recovering/Resolving]

NARRATIVE: CASE EVENT DATE: 2015
